FAERS Safety Report 10014718 (Version 1)
Quarter: 2014Q1

REPORT INFORMATION
  Report Type: Spontaneous
  Country: US (occurrence: US)
  Receive Date: 20140317
  Receipt Date: 20140317
  Transmission Date: 20141002
  Serious: Yes (Other)
  Sender: FDA-Public Use
  Company Number: US-BAYER-2014-034215

PATIENT
  Age: 89 Year
  Sex: Female

DRUGS (4)
  1. DIPHENHYDRAMINE HYDROCHLORIDE [Suspect]
     Indication: HYPERSENSITIVITY
     Dosage: 25 MG, HS
  2. AMANTADINE [Suspect]
     Indication: INFLUENZA
     Dosage: 100 MG, BID
  3. PREDNISONE [Concomitant]
     Indication: HYPERSENSITIVITY
     Dosage: 20 MG, BID
  4. METHYLPREDNISOLONE [METHYLPREDNISOLONE] [Concomitant]
     Indication: HYPERSENSITIVITY
     Dosage: 125 MG, ONCE
     Route: 042

REACTIONS (4)
  - Delirium [Recovered/Resolved]
  - Mania [Recovered/Resolved]
  - Psychotic disorder [Recovered/Resolved]
  - Withdrawal syndrome [Recovered/Resolved]
